FAERS Safety Report 10194857 (Version 2)
Quarter: 2014Q2

REPORT INFORMATION
  Report Type: Spontaneous
  Country: US (occurrence: US)
  Receive Date: 20140526
  Receipt Date: 20140606
  Transmission Date: 20141212
  Serious: No
  Sender: FDA-Public Use
  Company Number: US-PFIZER INC-2014138854

PATIENT
  Age: 38 Year
  Sex: Female

DRUGS (1)
  1. LYRICA [Suspect]
     Indication: CONGENITAL NEUROPATHY
     Dosage: 75 MG, 3X/DAY
     Route: 048

REACTIONS (9)
  - Swollen tongue [Recovered/Resolved]
  - Oedema mouth [Recovered/Resolved]
  - Hypoaesthesia oral [Recovered/Resolved]
  - Lip swelling [Recovered/Resolved]
  - Pruritus [Unknown]
  - Rash erythematous [Unknown]
  - Rash pustular [Unknown]
  - Weight increased [Unknown]
  - Oedema peripheral [Unknown]
